FAERS Safety Report 25824632 (Version 4)
Quarter: 2025Q4

REPORT INFORMATION
  Report Type: Report from Study
  Country: US (occurrence: None)
  Receive Date: 20250919
  Receipt Date: 20251217
  Transmission Date: 20260118
  Serious: Yes (Other)
  Sender: UCB
  Company Number: US-UCBSA-2025049265

PATIENT
  Age: 54 Year

DRUGS (2)
  1. BIMEKIZUMAB [Suspect]
     Active Substance: BIMEKIZUMAB
     Indication: Ankylosing spondylitis
     Dosage: 160 MILLIGRAM, EV 4 WEEKS
  2. BIMEKIZUMAB [Suspect]
     Active Substance: BIMEKIZUMAB
     Dosage: 160 MILLIGRAM, EV 4 WEEKS

REACTIONS (13)
  - Ankylosing spondylitis [Recovered/Resolved]
  - Ankle operation [Recovering/Resolving]
  - Injection site bruising [Recovered/Resolved]
  - Injection site inflammation [Recovered/Resolved]
  - Joint injury [Not Recovered/Not Resolved]
  - Tendon rupture [Recovering/Resolving]
  - Exostosis [Not Recovered/Not Resolved]
  - Abdominal discomfort [Recovered/Resolved]
  - Erythema [Recovered/Resolved]
  - Feeling hot [Recovered/Resolved]
  - Fall [Recovering/Resolving]
  - Intentional dose omission [Unknown]
  - Therapeutic response shortened [Unknown]
